FAERS Safety Report 6872676-0 (Version None)
Quarter: 2010Q3

REPORT INFORMATION
  Report Type: 
  Country: None (occurrence: None)
  Receive Date: 20100723
  Receipt Date: 20081023
  Transmission Date: 20110219
  Serious: No
  Sender: FDA-Public Use
  Company Number: US-PFIZER INC-2008090408

PATIENT
  Sex: Female
  Weight: 90.72 kg

DRUGS (9)
  1. CHANTIX [Suspect]
     Indication: SMOKING CESSATION THERAPY
     Dates: start: 20081015, end: 20081022
  2. DETROL LA [Concomitant]
  3. METHOTREXATE [Concomitant]
  4. FOLIC ACID [Concomitant]
  5. LEVOTHYROXINE SODIUM [Concomitant]
  6. LIPITOR [Concomitant]
  7. OMEPRAZOLE [Concomitant]
  8. HYDROXYCHLOROQUINE [Concomitant]
  9. ZOLPIDEM [Concomitant]

REACTIONS (2)
  - DIZZINESS [None]
  - NAUSEA [None]
